FAERS Safety Report 6507050-X (Version None)
Quarter: 2009Q4

REPORT INFORMATION
  Report Type: 
  Country: None (occurrence: None)
  Receive Date: 20091221
  Receipt Date: 20091208
  Transmission Date: 20100525
  Serious: Yes (Other)
  Sender: FDA-Public Use
  Company Number: PHHY2009CA31665

PATIENT
  Sex: Female

DRUGS (3)
  1. SANDOSTATIN [Suspect]
     Indication: CARCINOID TUMOUR PULMONARY
     Dosage: 10 MG, EVERY 4 WEEKS
     Route: 030
  2. SANDOSTATIN [Suspect]
     Dosage: 20 MG EVERY 4 WEEKS
     Route: 030
     Dates: start: 20090724
  3. MICARDIS HCT [Concomitant]
     Indication: HYPERTENSION
     Dosage: 80 MG, QD

REACTIONS (17)
  - ABDOMINAL DISCOMFORT [None]
  - ABDOMINAL PAIN [None]
  - ACTIVITIES OF DAILY LIVING IMPAIRED [None]
  - ANXIETY [None]
  - BEDRIDDEN [None]
  - BLOOD PRESSURE INCREASED [None]
  - BONE PAIN [None]
  - DIARRHOEA [None]
  - DIZZINESS [None]
  - FATIGUE [None]
  - GASTROINTESTINAL DISORDER [None]
  - INFLUENZA LIKE ILLNESS [None]
  - NERVOUSNESS [None]
  - PALPITATIONS [None]
  - RECTAL HAEMORRHAGE [None]
  - URINARY INCONTINENCE [None]
  - WEIGHT DECREASED [None]
